FAERS Safety Report 25739277 (Version 2)
Quarter: 2025Q3

REPORT INFORMATION
  Report Type: Spontaneous
  Country: US (occurrence: US)
  Receive Date: 20250829
  Receipt Date: 20250919
  Transmission Date: 20251021
  Serious: Yes (Other)
  Sender: ORGANON
  Company Number: US-ORGANON-O2508USA001752

PATIENT
  Age: 22 Year
  Sex: Female
  Weight: 80.272 kg

DRUGS (2)
  1. NEXPLANON [Suspect]
     Active Substance: ETONOGESTREL
     Indication: Contraception
     Route: 059
     Dates: start: 20250801, end: 20250819
  2. STRATTERA [Concomitant]
     Active Substance: ATOMOXETINE HYDROCHLORIDE
     Dosage: 25 MILLIGRAM, QD
     Route: 065

REACTIONS (10)
  - Drug-induced liver injury [Recovering/Resolving]
  - Decreased appetite [Recovering/Resolving]
  - Jaundice [Recovering/Resolving]
  - Nausea [Recovering/Resolving]
  - Chromaturia [Recovering/Resolving]
  - Pruritus [Recovering/Resolving]
  - Blood bilirubin increased [Recovering/Resolving]
  - Liver function test increased [Recovering/Resolving]
  - Thirst [Unknown]
  - Ocular icterus [Unknown]

NARRATIVE: CASE EVENT DATE: 20250801
